FAERS Safety Report 4323706-1 (Version None)
Quarter: 2004Q1

REPORT INFORMATION
  Report Type: 
  Country: None (occurrence: None)
  Receive Date: 20040325
  Receipt Date: 20040325
  Transmission Date: 20041129
  Serious: Yes (Death)
  Sender: FDA-Public Use
  Company Number: None

PATIENT
  Sex: Female
  Weight: 85.9 kg

DRUGS (18)
  1. VIDEX EC [Suspect]
     Indication: HIV INFECTION
     Dosage: 400 MG AT BEDTIME ORAL
     Route: 048
     Dates: start: 20030801, end: 20031027
  2. ARTHROTEK [Concomitant]
  3. DIPRIVAN XL [Concomitant]
  4. ESTROPIPATE [Concomitant]
  5. POTASSIUM SUPPLEMENT [Concomitant]
  6. PANITOL [Concomitant]
  7. MULTI-VITAMIN [Concomitant]
  8. TORSEMIDE [Concomitant]
  9. ASTELIN [Concomitant]
  10. ENTEX CAP [Concomitant]
  11. NASACORT [Concomitant]
  12. BACLOFEN [Concomitant]
  13. NEURONTIN [Concomitant]
  14. ULTRACET [Concomitant]
  15. METAMUCIL-2 [Concomitant]
  16. EPIVIR [Concomitant]
  17. LIPITOR [Concomitant]
  18. SUSTIVA [Concomitant]

REACTIONS (4)
  - KETOACIDOSIS [None]
  - MULTI-ORGAN FAILURE [None]
  - PANCREATITIS [None]
  - RESPIRATORY FAILURE [None]
